FAERS Safety Report 18170001 (Version 1)
Quarter: 2020Q3

REPORT INFORMATION
  Report Type: Spontaneous
  Country: CA (occurrence: CA)
  Receive Date: 20200819
  Receipt Date: 20200819
  Transmission Date: 20201103
  Serious: Yes (Life-Threatening, Hospitalization)
  Sender: FDA-Public Use
  Company Number: CA-ACCORD-195805

PATIENT
  Age: 8 Year
  Sex: Male
  Weight: 34 kg

DRUGS (8)
  1. LEVOFLOXACIN/LEVOFLOXACIN MESYLATE [Concomitant]
     Active Substance: LEVOFLOXACIN
  2. SULFAMETHOXAZOLE/TRIMETHOPRIM [Concomitant]
     Active Substance: SULFAMETHOXAZOLE\TRIMETHOPRIM
  3. FLUCONAZOLE. [Concomitant]
     Active Substance: FLUCONAZOLE
  4. METHOTREXATE. [Suspect]
     Active Substance: METHOTREXATE
     Indication: ACUTE LYMPHOCYTIC LEUKAEMIA
     Route: 048
  5. OMEPRAZOLE. [Concomitant]
     Active Substance: OMEPRAZOLE
  6. ONDANSETRON [Concomitant]
     Active Substance: ONDANSETRON
  7. ERWINIA [Suspect]
     Active Substance: ASPARAGINASE ERWINIA CHRYSANTHEMI
     Indication: ACUTE LYMPHOCYTIC LEUKAEMIA
     Route: 030
  8. MERCAPTOPURINE/MERCAPTOPURINE ANHYDROUS [Suspect]
     Active Substance: MERCAPTOPURINE
     Indication: ACUTE LYMPHOCYTIC LEUKAEMIA
     Route: 048

REACTIONS (6)
  - Bacteraemia [Unknown]
  - Neutropenia [Unknown]
  - Pyrexia [Unknown]
  - Bacterial infection [Unknown]
  - Abdominal pain [Unknown]
  - Clostridium test positive [Unknown]
